FAERS Safety Report 17488634 (Version 1)
Quarter: 2020Q1

REPORT INFORMATION
  Report Type: Spontaneous
  Country: US (occurrence: US)
  Receive Date: 20200220
  Receipt Date: 20200220
  Transmission Date: 20200409
  Serious: No
  Sender: FDA-Public Use
  Company Number: None

PATIENT
  Age: 79 Year
  Sex: Male
  Weight: 113.4 kg

DRUGS (1)
  1. HYDROCHLOROTHIAZIDE/LOSARTAN (HYDROCHLOROTHIAZIDE 12.5MG/LOSARTAN POTA [Suspect]
     Active Substance: HYDROCHLOROTHIAZIDE\LOSARTAN
     Dosage: ?          OTHER DOSE:12.5/100MG;?
     Route: 048
     Dates: start: 20170801, end: 20171026

REACTIONS (1)
  - Hyponatraemia [None]

NARRATIVE: CASE EVENT DATE: 20171026
